FAERS Safety Report 25486407 (Version 1)
Quarter: 2025Q2

REPORT INFORMATION
  Report Type: Spontaneous
  Country: JP (occurrence: JP)
  Receive Date: 20250627
  Receipt Date: 20250627
  Transmission Date: 20250716
  Serious: Yes (Hospitalization, Other)
  Sender: STRIDES
  Company Number: JP-STRIDES ARCOLAB LIMITED-2025SP007720

PATIENT
  Age: 71 Year
  Sex: Female

DRUGS (8)
  1. PREDNISOLONE [Suspect]
     Active Substance: PREDNISOLONE
     Indication: Organising pneumonia
     Route: 065
  2. METHYLPREDNISOLONE [Suspect]
     Active Substance: METHYLPREDNISOLONE
     Indication: Organising pneumonia
     Route: 065
  3. PALBOCICLIB [Concomitant]
     Active Substance: PALBOCICLIB
     Indication: Breast cancer stage IV
     Route: 065
  4. PALBOCICLIB [Concomitant]
     Active Substance: PALBOCICLIB
     Indication: Metastases to lung
     Route: 065
  5. PALBOCICLIB [Concomitant]
     Active Substance: PALBOCICLIB
     Indication: Metastases to bone
  6. LETROZOLE [Concomitant]
     Active Substance: LETROZOLE
     Indication: Breast cancer stage IV
     Route: 065
  7. LETROZOLE [Concomitant]
     Active Substance: LETROZOLE
     Indication: Metastases to lung
  8. LETROZOLE [Concomitant]
     Active Substance: LETROZOLE
     Indication: Metastases to bone

REACTIONS (2)
  - Condition aggravated [Recovering/Resolving]
  - Off label use [Unknown]
